FAERS Safety Report 24398185 (Version 1)
Quarter: 2024Q4

REPORT INFORMATION
  Report Type: Spontaneous
  Country: US (occurrence: US)
  Receive Date: 20241004
  Receipt Date: 20241004
  Transmission Date: 20250115
  Serious: No
  Sender: DR REDDYS
  Company Number: US-DRL-USA-SPO/USA/24/0013965

PATIENT
  Age: 20 Year
  Sex: Female

DRUGS (1)
  1. ACCUTANE [Suspect]
     Active Substance: ISOTRETINOIN
     Indication: Product used for unknown indication
     Route: 065

REACTIONS (9)
  - Lip dry [Unknown]
  - Dry skin [Unknown]
  - Mood swings [Unknown]
  - Arthralgia [Unknown]
  - Dry eye [Unknown]
  - Nasal dryness [Unknown]
  - Headache [Unknown]
  - Chapped lips [Unknown]
  - Herpes virus infection [Unknown]

NARRATIVE: CASE EVENT DATE: 20240918
